FAERS Safety Report 7759213-3 (Version None)
Quarter: 2011Q3

REPORT INFORMATION
  Report Type: 
  Country: None (occurrence: None)
  Receive Date: 20110919
  Receipt Date: 20110912
  Transmission Date: 20111222
  Serious: Yes (Other)
  Sender: FDA-Public Use
  Company Number: US-SANOFI-AVENTIS-2010SA014898

PATIENT
  Age: 67 Year
  Sex: Female
  Weight: 65 kg

DRUGS (10)
  1. IBUPROFEN [Concomitant]
     Dosage: AS NEEDED
     Route: 048
  2. AMBIEN CR [Suspect]
     Indication: SLEEP DISORDER
     Route: 048
     Dates: start: 20090901, end: 20100305
  3. AMBIEN CR [Suspect]
     Route: 048
     Dates: end: 20090901
  4. CYMBALTA [Concomitant]
  5. PRILOSEC [Concomitant]
  6. HYDROCODONE [Concomitant]
     Dosage: AS NEEDED
  7. SKELAXIN [Concomitant]
  8. SYNTHROID [Concomitant]
     Route: 048
  9. LIPITOR [Concomitant]
     Route: 048
  10. ALPRAZOLAM [Concomitant]
     Dosage: AS NEEDED
     Route: 048

REACTIONS (7)
  - CONCUSSION [None]
  - PAIN [None]
  - FALL [None]
  - AMNESIA [None]
  - RADIUS FRACTURE [None]
  - SOMNAMBULISM [None]
  - LACERATION [None]
